FAERS Safety Report 25043691 (Version 2)
Quarter: 2025Q1

REPORT INFORMATION
  Report Type: Spontaneous
  Country: US (occurrence: US)
  Receive Date: 20250306
  Receipt Date: 20250326
  Transmission Date: 20250409
  Serious: Yes (Hospitalization)
  Sender: CIPLA
  Company Number: US-CIPLA LTD.-2025US02482

PATIENT

DRUGS (1)
  1. ALBUTEROL [Suspect]
     Active Substance: ALBUTEROL
     Indication: Product used for unknown indication
     Route: 065

REACTIONS (3)
  - Adverse event [Unknown]
  - Drug dose omission by device [Unknown]
  - Device malfunction [Unknown]
